FAERS Safety Report 5584683-9 (Version None)
Quarter: 2008Q1

REPORT INFORMATION
  Report Type: 
  Country: None (occurrence: None)
  Receive Date: 20080108
  Receipt Date: 20071227
  Transmission Date: 20080703
  Serious: Yes (Other)
  Sender: FDA-Public Use
  Company Number: JP-PFIZER INC-2007106608

PATIENT
  Sex: Male
  Weight: 66.5 kg

DRUGS (13)
  1. GABAPEN [Suspect]
     Indication: NEURALGIA
     Route: 048
     Dates: start: 20070206, end: 20070220
  2. MYSLEE [Concomitant]
     Route: 048
     Dates: start: 20060808, end: 20070820
  3. OXYCONTIN [Concomitant]
     Route: 048
     Dates: start: 20061031, end: 20070820
  4. FAMOTIDINE [Concomitant]
     Route: 048
     Dates: start: 20061107, end: 20070820
  5. NOVAMIN [Concomitant]
     Route: 048
     Dates: start: 20061107, end: 20070820
  6. MAGNESIUM OXIDE [Concomitant]
     Route: 048
     Dates: start: 20061107, end: 20070820
  7. MEXITIL [Concomitant]
     Route: 048
     Dates: start: 20060130, end: 20070820
  8. SENNOSIDES [Concomitant]
     Route: 048
     Dates: start: 20061120, end: 20070820
  9. PREDONINE [Concomitant]
     Route: 048
     Dates: start: 20060206, end: 20070820
  10. LOXOPROFEN SODIUM [Concomitant]
     Route: 048
     Dates: start: 20061024, end: 20070820
  11. RITALIN [Concomitant]
     Route: 048
     Dates: start: 20070206, end: 20070820
  12. FLORID [Concomitant]
     Route: 048
     Dates: start: 20070206, end: 20070820
  13. MORPHINE HCL ELIXIR [Concomitant]
     Route: 048
     Dates: start: 20061017, end: 20070820

REACTIONS (6)
  - ASCITES [None]
  - C-REACTIVE PROTEIN INCREASED [None]
  - CHEST X-RAY ABNORMAL [None]
  - OEDEMA PERIPHERAL [None]
  - VOMITING [None]
  - WHITE BLOOD CELL COUNT INCREASED [None]
